FAERS Safety Report 26011236 (Version 1)
Quarter: 2025Q4

REPORT INFORMATION
  Report Type: Other
  Country: EU (occurrence: EU)
  Receive Date: 20251107
  Receipt Date: 20251107
  Transmission Date: 20260117
  Serious: Yes (Congenital Anomaly, Other)
  Sender: MACLEODS
  Company Number: EU-EMB-M202407040-1

PATIENT

DRUGS (8)
  1. PANTOPRAZOLE [Suspect]
     Active Substance: PANTOPRAZOLE
     Indication: Product used for unknown indication
     Dosage: AS NEEDED THROUGHOUT PREGNANCY
     Route: 064
     Dates: start: 202312, end: 202409
  2. SODIUM CHLORIDE [Suspect]
     Active Substance: SODIUM CHLORIDE
     Indication: Product used for unknown indication
     Route: 064
     Dates: start: 202312, end: 202409
  3. IPRATROPIUM [Suspect]
     Active Substance: IPRATROPIUM
     Indication: Product used for unknown indication
     Route: 064
     Dates: start: 202312, end: 202409
  4. SERTRALINE [Suspect]
     Active Substance: SERTRALINE HYDROCHLORIDE
     Indication: Product used for unknown indication
     Route: 064
     Dates: start: 202312, end: 202409
  5. FLUTIFORM [Suspect]
     Active Substance: FLUTIFORM
     Indication: Product used for unknown indication
     Dosage: DOSAGE 125/5 UG/D
     Route: 064
     Dates: start: 202312, end: 202409
  6. SPIRIVA [Suspect]
     Active Substance: TIOTROPIUM BROMIDE MONOHYDRATE
     Indication: Product used for unknown indication
     Dosage: DOSAGE 1-2 UNITS PER DAY/CORRESPONDS TO 2.5-5 UG/D
     Route: 064
     Dates: start: 202312, end: 202409
  7. FEXOFENADINE [Suspect]
     Active Substance: FEXOFENADINE HYDROCHLORIDE
     Indication: Product used for unknown indication
     Dosage: AS NEEDED THROUGHOUT PREGNANCY
     Route: 064
     Dates: start: 202312, end: 202409
  8. ELEXACAFTOR\IVACAFTOR\TEZACAFTOR [Suspect]
     Active Substance: ELEXACAFTOR\IVACAFTOR\TEZACAFTOR
     Indication: Product used for unknown indication
     Dosage: TOTAL OF ALL ACTIVE INGREDIENTS 450 MG/D
     Route: 064
     Dates: start: 202312, end: 202409

REACTIONS (3)
  - Microcephaly [Unknown]
  - Small for dates baby [Unknown]
  - Foetal exposure during pregnancy [Unknown]

NARRATIVE: CASE EVENT DATE: 20240901
